FAERS Safety Report 9908500 (Version 1)
Quarter: 2014Q1

REPORT INFORMATION
  Report Type: Spontaneous
  Country: US (occurrence: None)
  Receive Date: 20140214
  Receipt Date: 20140214
  Transmission Date: 20141002
  Serious: Yes (Hospitalization)
  Sender: FDA-Public Use
  Company Number: None

PATIENT
  Age: 68 Year
  Sex: Female
  Weight: 77 kg

DRUGS (8)
  1. DIGOXIN [Suspect]
     Indication: CORONARY ARTERY DISEASE
     Dosage: 250MCG  DAILY  PO?CHRONIC
     Route: 048
  2. ATORVASTATIN [Concomitant]
  3. MVI [Concomitant]
  4. POTASSIUM GLUCONATE [Concomitant]
  5. METFORMIN-SAXAGLIPTIN [Concomitant]
  6. LISINOPRIL [Concomitant]
  7. CARVEDILOL [Concomitant]
  8. HCTZ [Concomitant]

REACTIONS (5)
  - Asthenia [None]
  - Renal failure [None]
  - Toxicity to various agents [None]
  - Dehydration [None]
  - Hypophagia [None]
